FAERS Safety Report 8839208 (Version 2)
Quarter: 2012Q4

REPORT INFORMATION
  Report Type: Report from Study
  Country: NL (occurrence: NL)
  Receive Date: 20121015
  Receipt Date: 20121018
  Transmission Date: 20130627
  Serious: Yes (Death, Hospitalization, Other)
  Sender: FDA-Public Use
  Company Number: NL-GENZYME-CLOF-1002275

PATIENT
  Age: 40 None
  Sex: Male
  Weight: 74 kg

DRUGS (6)
  1. EVOLTRA [Suspect]
     Indication: ACUTE MYELOID LEUKAEMIA
     Dosage: 20 mg, UNK
     Route: 042
     Dates: start: 20120808
  2. EVOLTRA [Suspect]
     Dosage: 20 mg, UNK
     Route: 042
     Dates: start: 20120911
  3. IDARUBICIN [Suspect]
     Indication: ACUTE MYELOID LEUKAEMIA
     Dosage: 25 mg, UNK
     Route: 042
     Dates: start: 20120808
  4. CYTARABINE [Suspect]
     Indication: ACUTE MYELOID LEUKAEMIA
     Dosage: 400 mg, UNK
     Route: 042
     Dates: start: 20120808
  5. CYTARABINE [Suspect]
     Dosage: 4000 mg, UNK
     Route: 042
     Dates: start: 20120911
  6. AMSACRINE [Suspect]
     Indication: ACUTE MYELOID LEUKAEMIA
     Dosage: 240 UNK, UNK
     Route: 042
     Dates: start: 20120914

REACTIONS (7)
  - Respiratory failure [Fatal]
  - Gamma-glutamyltransferase increased [Unknown]
  - Acute respiratory distress syndrome [Unknown]
  - Hyperbilirubinaemia [Recovered/Resolved]
  - Aspartate aminotransferase increased [Unknown]
  - Alanine aminotransferase increased [Unknown]
  - Pneumonia [Unknown]
